FAERS Safety Report 23826918 (Version 1)
Quarter: 2024Q2

REPORT INFORMATION
  Report Type: Spontaneous
  Country: DE (occurrence: DE)
  Receive Date: 20240507
  Receipt Date: 20240507
  Transmission Date: 20240716
  Serious: Yes (Hospitalization, Other)
  Sender: FDA-Public Use
  Company Number: DE-GERMAN-LIT/DEU/24/0006750

PATIENT
  Age: 6 Year
  Sex: Male

DRUGS (14)
  1. LEVETIRACETAM [Suspect]
     Active Substance: LEVETIRACETAM
     Indication: Generalised tonic-clonic seizure
     Dosage: 40 MG/KG/DAY
  2. LEVETIRACETAM [Suspect]
     Active Substance: LEVETIRACETAM
     Dosage: 60 MG/KG/DAY
     Route: 042
  3. LEVETIRACETAM [Suspect]
     Active Substance: LEVETIRACETAM
     Dosage: 60 MG/KG/DAY
     Route: 042
  4. LACOSAMIDE [Suspect]
     Active Substance: LACOSAMIDE
     Indication: Generalised tonic-clonic seizure
     Route: 042
  5. LORAZEPAM [Suspect]
     Active Substance: LORAZEPAM
     Indication: Generalised tonic-clonic seizure
     Route: 042
  6. MIDAZOLAM [Suspect]
     Active Substance: MIDAZOLAM
     Indication: Generalised tonic-clonic seizure
     Route: 048
  7. CLOBAZAM [Suspect]
     Active Substance: CLOBAZAM
     Indication: Generalised tonic-clonic seizure
     Dosage: 0.11 MG/KG/DAY
  8. CLOBAZAM [Suspect]
     Active Substance: CLOBAZAM
     Dosage: 0.06MG/KG/DAY
  9. OXCARBAZEPINE [Suspect]
     Active Substance: OXCARBAZEPINE
     Indication: Generalised tonic-clonic seizure
     Dosage: 0.25 MG/KG/DAY
  10. FOSPHENYTOIN [Suspect]
     Active Substance: FOSPHENYTOIN
     Indication: Generalised tonic-clonic seizure
     Dosage: EXACT DOSE NOT AVAILABLE
  11. FOSPHENYTOIN [Suspect]
     Active Substance: FOSPHENYTOIN
     Dosage: 0.11 MG/KG/DAY
  12. PHENOBARBITAL [Suspect]
     Active Substance: PHENOBARBITAL
     Indication: Generalised tonic-clonic seizure
     Route: 048
  13. PHENOBARBITAL [Suspect]
     Active Substance: PHENOBARBITAL
     Route: 042
  14. VALPROIC ACID [Concomitant]
     Active Substance: VALPROIC ACID
     Indication: Generalised tonic-clonic seizure
     Route: 042

REACTIONS (4)
  - Drug ineffective [Unknown]
  - Disease progression [Unknown]
  - Status epilepticus [Unknown]
  - Muscle spasms [Unknown]
